FAERS Safety Report 4968187-X (Version None)
Quarter: 2006Q2

REPORT INFORMATION
  Report Type: 
  Country: None (occurrence: None)
  Receive Date: 20060405
  Receipt Date: 20060327
  Transmission Date: 20061013
  Serious: Yes (Other)
  Sender: FDA-Public Use
  Company Number: 2006-03-1639

PATIENT
  Age: 3 Year
  Sex: Male
  Weight: 13 kg

DRUGS (1)
  1. AERIUS (DESLORATADINE)SYRUP  ^CLARINEX^ [Suspect]
     Indication: NASAL CONGESTION
     Dosage: 3ML QD ORAL
     Route: 048
     Dates: start: 20060318, end: 20060320

REACTIONS (1)
  - VOMITING [None]
